FAERS Safety Report 6695467-2 (Version None)
Quarter: 2010Q2

REPORT INFORMATION
  Report Type: 
  Country: None (occurrence: None)
  Receive Date: 20100422
  Receipt Date: 20100422
  Transmission Date: 20101027
  Serious: Yes (Hospitalization)
  Sender: FDA-Public Use
  Company Number: None

PATIENT
  Age: 56 Year
  Sex: Male
  Weight: 94.8 kg

DRUGS (2)
  1. VANCOMYCIN [Suspect]
     Indication: OSTEOMYELITIS
     Dosage: 1.5 GM BID IV
     Route: 042
     Dates: start: 20100125, end: 20100212
  2. PIPERACILLIN AND TAZOBACTAM [Suspect]
     Dosage: 3.375 GM QID IV
     Route: 042
     Dates: start: 20100125, end: 20100212

REACTIONS (1)
  - RENAL FAILURE ACUTE [None]
